FAERS Safety Report 4350057-1 (Version None)
Quarter: 2004Q2

REPORT INFORMATION
  Report Type: 
  Country: None (occurrence: None)
  Receive Date: 20040429
  Receipt Date: 20040419
  Transmission Date: 20050107
  Serious: Yes (Death, Other)
  Sender: FDA-Public Use
  Company Number: US-AMGEN-US071566

PATIENT
  Sex: Female
  Weight: 62.7 kg

DRUGS (2)
  1. ENBREL [Suspect]
     Indication: RHEUMATOID ARTHRITIS
     Route: 058
     Dates: start: 20000401, end: 20031217
  2. METHOTREXATE [Concomitant]
     Dates: start: 19980626, end: 20031217

REACTIONS (1)
  - LUNG ADENOCARCINOMA [None]
